FAERS Safety Report 7397890 (Version 3)
Quarter: 2013Q1

REPORT INFORMATION
  Report Type: Spontaneous
  Country: NL (occurrence: None)
  Receive Date: 20100517
  Receipt Date: 20120926
  Transmission Date: 20140127
  Serious: Yes (Other)
  Sender: FDA-Public Use
  Company Number: 2010AP000929

PATIENT
  Age: 82 Year
  Sex: Female

DRUGS (2)
  1. CIPROFLOXACIN HYDROCHLORIDE [Suspect]
     Indication: LOCALISED INFECTION
  2. CLINDAMYCIN HYDROCHLORIDE [Concomitant]

REACTIONS (11)
  - Vasculitis [None]
  - Haemorrhage [None]
  - Erythema [None]
  - Purpura [None]
  - Localised infection [None]
  - Peripheral artery stenosis [None]
  - Peripheral arterial occlusive disease [None]
  - Proteus infection [None]
  - Enterobacter infection [None]
  - Burning sensation [None]
  - Cutaneous vasculitis [None]
